FAERS Safety Report 5008798-9 (Version None)
Quarter: 2006Q2

REPORT INFORMATION
  Report Type: 
  Country: None (occurrence: None)
  Receive Date: 20060518
  Receipt Date: 20060505
  Transmission Date: 20061013
  Serious: Yes (Other)
  Sender: FDA-Public Use
  Company Number: 2006BH009482

PATIENT
  Sex: 0

DRUGS (1)
  1. BALANCED SALT SOLUTION [Suspect]
     Dosage: 500 ML; UNK
     Route: 065

REACTIONS (1)
  - ENDOPHTHALMITIS [None]
